FAERS Safety Report 14913980 (Version 1)
Quarter: 2018Q2

REPORT INFORMATION
  Report Type: Spontaneous
  Country: US (occurrence: US)
  Receive Date: 20180501
  Receipt Date: 20180501
  Transmission Date: 20180711
  Serious: Yes (Death)
  Sender: FDA-Public Use
  Company Number: None

PATIENT
  Age: 5 Year
  Sex: Male

DRUGS (1)
  1. FARYDAK [Suspect]
     Active Substance: PANOBINOSTAT

REACTIONS (1)
  - Disease progression [None]

NARRATIVE: CASE EVENT DATE: 20180305
